FAERS Safety Report 23089101 (Version 1)
Quarter: 2023Q4

REPORT INFORMATION
  Report Type: Spontaneous
  Country: EG (occurrence: EG)
  Receive Date: 20231020
  Receipt Date: 20231020
  Transmission Date: 20240110
  Serious: Yes (Hospitalization, Other)
  Sender: FDA-Public Use
  Company Number: EG-SA-SAC20231019000231

PATIENT
  Age: 68 Year
  Sex: Male
  Weight: 90 kg

DRUGS (12)
  1. ENOXAPARIN SODIUM [Suspect]
     Active Substance: ENOXAPARIN SODIUM
     Indication: Deep vein thrombosis
     Dosage: 40 MG, QD
     Route: 065
     Dates: start: 20230825, end: 20230912
  2. ASPIRIN ALUMINUM [Concomitant]
     Active Substance: ASPIRIN ALUMINUM
     Indication: Antiplatelet therapy
     Dosage: 75 MG, QD
     Route: 048
  3. ASPIRIN ALUMINUM [Concomitant]
     Active Substance: ASPIRIN ALUMINUM
     Indication: Ischaemic stroke
  4. MEROPENEM [Concomitant]
     Active Substance: MEROPENEM
     Dosage: UNK
  5. CRESTOR [Concomitant]
     Active Substance: ROSUVASTATIN CALCIUM
     Dosage: UNK
  6. LEVOPHED [Concomitant]
     Active Substance: NOREPINEPHRINE BITARTRATE
     Dosage: UNK
  7. SOLU-CORTEF [Concomitant]
     Active Substance: HYDROCORTISONE SODIUM SUCCINATE
     Dosage: UNK
  8. AMINO ACIDS, SOURCE UNSPECIFIED [Concomitant]
     Active Substance: AMINO ACIDS, SOURCE UNSPECIFIED
     Dosage: UNK
  9. CONTROLOC [Concomitant]
     Active Substance: PANTOPRAZOLE SODIUM
     Dosage: UNK
  10. NOREPINEPHRINE [Concomitant]
     Active Substance: NOREPINEPHRINE
     Dosage: UNK
  11. RINGERS SOLUTION [Concomitant]
     Active Substance: CALCIUM CHLORIDE\POTASSIUM CHLORIDE\SODIUM CHLORIDE
     Dosage: UNK
  12. B COM [Concomitant]
     Dosage: UNK

REACTIONS (5)
  - Cutaneous leishmaniasis [Not Recovered/Not Resolved]
  - Pyrexia [Not Recovered/Not Resolved]
  - Seizure [Not Recovered/Not Resolved]
  - Thrombocytopenia [Not Recovered/Not Resolved]
  - Platelet count decreased [Not Recovered/Not Resolved]

NARRATIVE: CASE EVENT DATE: 20230825
